FAERS Safety Report 4977721-5 (Version None)
Quarter: 2006Q2

REPORT INFORMATION
  Report Type: 
  Country: None (occurrence: None)
  Receive Date: 20060414
  Receipt Date: 20060404
  Transmission Date: 20061013
  Serious: Yes (Hospitalization)
  Sender: FDA-Public Use
  Company Number: FRWYE530304APR06

PATIENT
  Age: 82 Year
  Sex: Female

DRUGS (8)
  1. EFFEXOR XR [Suspect]
     Indication: DEPRESSION
     Dosage: 75 MG TOTAL DAILY ORAL
     Route: 048
     Dates: start: 20060113, end: 20060124
  2. TIENAM (CILASTATIN/IMIPENEM) [Concomitant]
  3. CELIPROLOL (CELIPROLOL) [Concomitant]
  4. OMEPRAZOLE [Concomitant]
  5. VITAMIN D [Concomitant]
  6. BROMAZEPAM (BROMAZEPAM) [Concomitant]
  7. PAROXETINE HYDROCHLORIDE [Concomitant]
  8. PARACETAMOL (PARCETAMOL) [Concomitant]

REACTIONS (4)
  - CHOLELITHIASIS [None]
  - CONDITION AGGRAVATED [None]
  - JAUNDICE CHOLESTATIC [None]
  - PELVIC VENOUS THROMBOSIS [None]
